FAERS Safety Report 4894850-5 (Version None)
Quarter: 2006Q1

REPORT INFORMATION
  Report Type: 
  Country: None (occurrence: None)
  Receive Date: 20060124
  Receipt Date: 20060116
  Transmission Date: 20060701
  Serious: Yes (Life-Threatening, Hospitalization)
  Sender: FDA-Public Use
  Company Number: MK200601-0160-1

PATIENT
  Age: 51 Year
  Sex: Female

DRUGS (3)
  1. HEXABRIX [Suspect]
     Indication: SCAN
     Dosage: 10 ML, SINGLE USE, IV
     Route: 042
     Dates: start: 20051207, end: 20051207
  2. PARAPLATIN [Suspect]
     Indication: CHEMOTHERAPY
     Dates: start: 20051207, end: 20051207
  3. CYCLOPHOSPHAMIDE [Suspect]
     Indication: CHEMOTHERAPY
     Dates: start: 20051207, end: 20051207

REACTIONS (2)
  - ANAPHYLACTIC SHOCK [None]
  - INFUSION RELATED REACTION [None]
